FAERS Safety Report 8901595 (Version 1)
Quarter: 2012Q4

REPORT INFORMATION
  Report Type: Spontaneous
  Country: US (occurrence: None)
  Receive Date: 20121108
  Receipt Date: 20121108
  Transmission Date: 20130627
  Serious: Yes (Other)
  Sender: FDA-Public Use
  Company Number: None

PATIENT
  Age: 88 Year
  Sex: Female
  Weight: 62.14 kg

DRUGS (2)
  1. PRADAXA 75 MG BOEHRINGER INGELHEIM [Suspect]
     Indication: ATRIAL FIBRILLATION
     Dosage: 75mg   boid   po
     Route: 048
     Dates: start: 20121027, end: 20121031
  2. PRADAXA 75 MG BOEHRINGER INGELHEIM [Suspect]
     Indication: NON STEMI
     Dosage: 75mg   boid   po
     Route: 048
     Dates: start: 20121027, end: 20121031

REACTIONS (1)
  - Gastrointestinal haemorrhage [None]
